FAERS Safety Report 7491260-1 (Version None)
Quarter: 2011Q2

REPORT INFORMATION
  Report Type: 
  Country: None (occurrence: None)
  Receive Date: 20110519
  Receipt Date: 20110511
  Transmission Date: 20111010
  Serious: Yes (Other)
  Sender: FDA-Public Use
  Company Number: A0926988A

PATIENT
  Age: 73 Year
  Sex: Female

DRUGS (10)
  1. XOPENEX [Concomitant]
  2. ASPIRIN [Concomitant]
  3. THYROID MEDICATION [Concomitant]
  4. BLOOD PRESSURE MEDICATION [Concomitant]
  5. METOPROLOL TARTRATE [Concomitant]
  6. FLECAINIDE ACETATE [Concomitant]
  7. ADVAIR DISKUS 100/50 [Suspect]
     Indication: CHRONIC OBSTRUCTIVE PULMONARY DISEASE
     Dosage: 1PUFF TWICE PER DAY
     Route: 055
     Dates: start: 20090101
  8. ISOSORBIDE DINITRATE [Concomitant]
  9. NORVASC [Concomitant]
  10. COZAAR [Concomitant]

REACTIONS (11)
  - OEDEMA PERIPHERAL [None]
  - DEPRESSION [None]
  - GOUT [None]
  - DRUG INEFFECTIVE [None]
  - COUGH [None]
  - SWELLING [None]
  - SWELLING FACE [None]
  - DYSPNOEA [None]
  - DYSPHONIA [None]
  - SPUTUM INCREASED [None]
  - MICTURITION FREQUENCY DECREASED [None]
